FAERS Safety Report 16577992 (Version 1)
Quarter: 2019Q3

REPORT INFORMATION
  Report Type: Spontaneous
  Country: GB (occurrence: GB)
  Receive Date: 20190716
  Receipt Date: 20190716
  Transmission Date: 20191004
  Serious: Yes (Hospitalization)
  Sender: FDA-Public Use
  Company Number: GB-TEVA-2019-GB-1076964

PATIENT
  Age: 47 Year
  Sex: Female

DRUGS (20)
  1. ONDANSETRON HYDROCHLORIDE. [Concomitant]
     Active Substance: ONDANSETRON HYDROCHLORIDE
  2. DICLOFENAC [Concomitant]
     Active Substance: DICLOFENAC
  3. FILGRASTIM [Concomitant]
     Active Substance: FILGRASTIM
  4. METOCLOPRAMIDE. [Concomitant]
     Active Substance: METOCLOPRAMIDE
  5. SNO TEARS [Concomitant]
  6. DEXAMETHASONE. [Concomitant]
     Active Substance: DEXAMETHASONE
  7. QV CREAM [Concomitant]
  8. DOCUSATE [Concomitant]
     Active Substance: DOCUSATE
  9. CYCLOPHOSPHAMIDE. [Concomitant]
     Active Substance: CYCLOPHOSPHAMIDE
  10. FLUCONAZOLE. [Concomitant]
     Active Substance: FLUCONAZOLE
  11. CLOTRIMAZOLE. [Concomitant]
     Active Substance: CLOTRIMAZOLE
  12. HYDROCORTISONE CREAM [Concomitant]
     Active Substance: HYDROCORTISONE
  13. DOCETAXEL. [Suspect]
     Active Substance: DOCETAXEL
     Indication: BREAST CANCER
     Dosage: OVER 1 HOUR
     Route: 042
     Dates: start: 20190314, end: 20190528
  14. ENOXAPARIN [Concomitant]
     Active Substance: ENOXAPARIN
  15. OMEPRAZOLE. [Concomitant]
     Active Substance: OMEPRAZOLE
  16. PARACETAMOL [Concomitant]
     Active Substance: ACETAMINOPHEN
  17. CASSIA [Concomitant]
  18. TAMOXIFEN [Concomitant]
     Active Substance: TAMOXIFEN
  19. EPIRUBICIN [Concomitant]
     Active Substance: EPIRUBICIN
  20. CO-AMOXICLAV [Concomitant]
     Active Substance: AMOXICILLIN\CLAVULANATE POTASSIUM

REACTIONS (4)
  - Peripheral swelling [Unknown]
  - Infusion site extravasation [Recovered/Resolved]
  - Blister [Unknown]
  - Erythema [Unknown]

NARRATIVE: CASE EVENT DATE: 20190527
